FAERS Safety Report 7956406-7 (Version None)
Quarter: 2011Q4

REPORT INFORMATION
  Report Type: 
  Country: None (occurrence: None)
  Receive Date: 20111205
  Receipt Date: 20110804
  Transmission Date: 20120403
  Serious: Yes (Other)
  Sender: FDA-Public Use
  Company Number: BR-PFIZER INC-2011294081

PATIENT
  Sex: Female

DRUGS (1)
  1. DOSTINEX [Suspect]
     Dosage: HALF TABLET DAILY
     Route: 048

REACTIONS (1)
  - SURGERY [None]
